FAERS Safety Report 8195954-4 (Version None)
Quarter: 2012Q1

REPORT INFORMATION
  Report Type: 
  Country: None (occurrence: None)
  Receive Date: 20120309
  Receipt Date: 20120229
  Transmission Date: 20120608
  Serious: Yes (Hospitalization)
  Sender: FDA-Public Use
  Company Number: US-BIOGENIDEC-2011BI011223

PATIENT
  Age: 56 Year
  Sex: Female

DRUGS (1)
  1. TYSABRI [Suspect]
     Indication: MULTIPLE SCLEROSIS
     Route: 042
     Dates: start: 20080530

REACTIONS (7)
  - STAPHYLOCOCCAL INFECTION [None]
  - IMMUNE SYSTEM DISORDER [None]
  - FATIGUE [None]
  - DIVERTICULITIS [None]
  - MUSCULAR WEAKNESS [None]
  - COGNITIVE DISORDER [None]
  - BALANCE DISORDER [None]
